FAERS Safety Report 4350834-7 (Version None)
Quarter: 2004Q2

REPORT INFORMATION
  Report Type: 
  Country: None (occurrence: None)
  Receive Date: 20040427
  Receipt Date: 20040414
  Transmission Date: 20050107
  Serious: Yes (Hospitalization, Other)
  Sender: FDA-Public Use
  Company Number: HQWYE479315APR04

PATIENT
  Age: 43 Year
  Sex: Female
  Weight: 40.8 kg

DRUGS (17)
  1. RAPAMUNE [Suspect]
     Indication: PROPHYLAXIS AGAINST TRANSPLANT REJECTION
     Dosage: 3 MG 1X PER 1 DAY, ORAL
     Route: 048
     Dates: start: 20040323, end: 20040401
  2. RAPAMUNE [Suspect]
     Dosage: 1 MG 1X PER 1 DAY, ORAL
     Route: 048
     Dates: start: 20040401
  3. NEORAL [Concomitant]
  4. PREDNISONE [Concomitant]
  5. VALCYTE [Concomitant]
  6. DAPSONE [Concomitant]
  7. NYSTATIN [Concomitant]
  8. MULTIVITAMINS, PALIN [Concomitant]
  9. FOLIC ACID [Concomitant]
  10. PROTONIX [Concomitant]
  11. LOPRESSOR [Concomitant]
  12. CATAPRES [Concomitant]
  13. PROCARDIA [Concomitant]
  14. FUROSEMIDE [Concomitant]
  15. PROZAC [Concomitant]
  16. EPOGEN [Concomitant]
  17. PREMARIN [Concomitant]

REACTIONS (6)
  - CELLULITIS [None]
  - COMPLICATIONS OF TRANSPLANTED KIDNEY [None]
  - HAEMODIALYSIS [None]
  - HAEMOGLOBIN DECREASED [None]
  - OLIGURIA [None]
  - RENAL TUBULAR NECROSIS [None]
